FAERS Safety Report 6941400-5 (Version None)
Quarter: 2010Q3

REPORT INFORMATION
  Report Type: 
  Country: None (occurrence: None)
  Receive Date: 20100825
  Receipt Date: 20100817
  Transmission Date: 20110219
  Serious: Yes (Hospitalization)
  Sender: FDA-Public Use
  Company Number: GB-ELI_LILLY_AND_COMPANY-GB201008006200

PATIENT
  Sex: Male

DRUGS (9)
  1. BYETTA [Suspect]
     Indication: DIABETES MELLITUS
     Dosage: 10 UG, 2/D
     Route: 058
  2. ASPIRIN [Concomitant]
     Dosage: 75 MG, DAILY (1/D)
  3. ATENOLOL [Concomitant]
     Indication: HYPERTENSION
     Dosage: 50 MG, UNK
     Route: 048
     Dates: start: 20050401, end: 20100608
  4. FRUSEMIDE [Concomitant]
     Dosage: 40 MG, DAILY (1/D)
  5. GABAPENTIN [Concomitant]
     Dosage: 600 MG, 3/D
  6. HUMULIN /00646001/ [Concomitant]
     Indication: DIABETES MELLITUS
     Route: 058
     Dates: start: 20080516
  7. METFORMIN HCL [Concomitant]
     Indication: DIABETES MELLITUS
     Dosage: 1 G, 2/D
  8. RAMIPRIL [Concomitant]
     Indication: HYPERTENSION
     Dosage: 10 MG, UNK
     Route: 048
     Dates: start: 20030319
  9. SIMVASTATIN [Concomitant]
     Indication: HYPERCHOLESTEROLAEMIA
     Dosage: 40 MG, UNK
     Route: 048
     Dates: start: 20031010

REACTIONS (2)
  - BENIGN PANCREATIC NEOPLASM [None]
  - OFF LABEL USE [None]
